FAERS Safety Report 19849198 (Version 1)
Quarter: 2021Q3

REPORT INFORMATION
  Report Type: Spontaneous
  Country: US (occurrence: US)
  Receive Date: 20210918
  Receipt Date: 20210918
  Transmission Date: 20211014
  Serious: No
  Sender: FDA-Public Use
  Company Number: US-NEUROCRINE BIOSCIENCES INC.-2021NBI05061

PATIENT

DRUGS (3)
  1. PRIMIDONE. [Suspect]
     Active Substance: PRIMIDONE
     Dosage: UNK
  2. INGREZZA [Suspect]
     Active Substance: VALBENAZINE
     Indication: TARDIVE DYSKINESIA
     Dosage: 60 MILLIGRAM
     Route: 048
  3. INGREZZA [Suspect]
     Active Substance: VALBENAZINE
     Dosage: 40 MILLIGRAM
     Route: 048

REACTIONS (3)
  - Drug interaction [Unknown]
  - Tremor [Unknown]
  - Drug ineffective [Unknown]
